FAERS Safety Report 6899285-1 (Version None)
Quarter: 2010Q3

REPORT INFORMATION
  Report Type: 
  Country: None (occurrence: None)
  Receive Date: 20100802
  Receipt Date: 20080804
  Transmission Date: 20110219
  Serious: No
  Sender: FDA-Public Use
  Company Number: US-PFIZER INC-2007103499

PATIENT
  Sex: Female
  Weight: 61.363 kg

DRUGS (8)
  1. LYRICA [Suspect]
     Indication: FIBROMYALGIA
     Dates: start: 20071101
  2. LISINOPRIL [Concomitant]
  3. METOPROLOL [Concomitant]
  4. VYTORIN [Concomitant]
  5. ASPIRIN [Concomitant]
  6. NEXIUM [Concomitant]
  7. ALPRAZOLAM [Concomitant]
  8. PREMARIN [Concomitant]

REACTIONS (2)
  - DRUG DOSE OMISSION [None]
  - PAIN [None]
